FAERS Safety Report 4518014-X (Version None)
Quarter: 2004Q4

REPORT INFORMATION
  Report Type: 
  Country: None (occurrence: None)
  Receive Date: 20041130
  Receipt Date: 20041115
  Transmission Date: 20050328
  Serious: Yes (Other)
  Sender: FDA-Public Use
  Company Number: US_0411108094

PATIENT
  Age: 59 Year
  Sex: Female
  Weight: 127 kg

DRUGS (2)
  1. HUMULIN R [Suspect]
     Dosage: 30 U/2 DAY
     Dates: start: 19940101
  2. HUMULIN N [Suspect]
     Dosage: 95 U DAY
     Dates: start: 19940101

REACTIONS (4)
  - RETINAL VASCULAR DISORDER [None]
  - VASCULAR RUPTURE [None]
  - VISUAL ACUITY REDUCED [None]
  - VISUAL DISTURBANCE [None]
